FAERS Safety Report 7460545-7 (Version None)
Quarter: 2011Q2

REPORT INFORMATION
  Report Type: 
  Country: None (occurrence: None)
  Receive Date: 20110505
  Receipt Date: 20110121
  Transmission Date: 20111010
  Serious: Yes (Hospitalization)
  Sender: FDA-Public Use
  Company Number: NO-AMGEN-NORCT2010004675

PATIENT
  Age: 31 Year
  Sex: Female

DRUGS (5)
  1. IBUX [Concomitant]
     Dosage: UNK
     Dates: start: 20101001, end: 20101023
  2. DOCETAXEL [Suspect]
     Indication: BREAST CANCER
     Dosage: 200 MG, 3 TIMES/WK
     Route: 042
     Dates: start: 20101018
  3. PINEX FORTE [Concomitant]
     Dosage: UNK
     Dates: start: 20101001
  4. VIVAL [Concomitant]
     Dosage: UNK
     Dates: start: 20100816
  5. PEGFILGRASTIM [Suspect]
     Indication: PRODUCT USED FOR UNKNOWN INDICATION
     Dosage: UNK UNK, PRN
     Route: 065
     Dates: start: 20100817

REACTIONS (2)
  - PNEUMONIA [None]
  - CHEST PAIN [None]
